FAERS Safety Report 5657664-4 (Version None)
Quarter: 2008Q1

REPORT INFORMATION
  Report Type: 
  Country: None (occurrence: None)
  Receive Date: 20080310
  Receipt Date: 20080225
  Transmission Date: 20080703
  Serious: Yes (Other)
  Sender: FDA-Public Use
  Company Number: PHBS2008FR02573

PATIENT
  Age: 79 Year
  Sex: Male

DRUGS (2)
  1. CARTEOLOL (NVO) [Suspect]
     Indication: GLAUCOMA
     Dates: start: 20071101, end: 20080213
  2. ZYRTEC [Concomitant]

REACTIONS (3)
  - ATRIOVENTRICULAR BLOCK [None]
  - BRADYCARDIA [None]
  - DYSPNOEA [None]
